FAERS Safety Report 10185084 (Version 1)
Quarter: 2014Q2

REPORT INFORMATION
  Report Type: Report from Study
  Country: AU (occurrence: None)
  Receive Date: 20140519
  Receipt Date: 20140519
  Transmission Date: 20141212
  Serious: Yes (Hospitalization, Other)
  Sender: FDA-Public Use
  Company Number: 2014-19536

PATIENT
  Age: 59 Year
  Sex: Female

DRUGS (1)
  1. EYLEA [Suspect]
     Indication: AGE-RELATED MACULAR DEGENERATION
     Dosage: RIGHT EYE INJECTION EVER 5-6 WEEKS
     Route: 031

REACTIONS (2)
  - Blindness transient [None]
  - Inappropriate schedule of drug administration [None]
